FAERS Safety Report 19900919 (Version 1)
Quarter: 2021Q3

REPORT INFORMATION
  Report Type: Spontaneous
  Country: US (occurrence: US)
  Receive Date: 20210930
  Receipt Date: 20210930
  Transmission Date: 20211014
  Serious: Yes (Hospitalization)
  Sender: FDA-Public Use
  Company Number: None

PATIENT
  Sex: Female

DRUGS (2)
  1. ZOLEDRONIC ACID 5MG/100ML SDV [Suspect]
     Active Substance: ZOLEDRONIC ACID
     Indication: MULTIPLE SCLEROSIS
  2. N/A [Concomitant]
     Active Substance: UNSPECIFIED INGREDIENT

REACTIONS (1)
  - Transient ischaemic attack [None]
